FAERS Safety Report 17669703 (Version 1)
Quarter: 2020Q2

REPORT INFORMATION
  Report Type: Spontaneous
  Country: US (occurrence: US)
  Receive Date: 20200414
  Receipt Date: 20200414
  Transmission Date: 20200713
  Serious: Yes (Other)
  Sender: FDA-Public Use
  Company Number: None

PATIENT
  Age: 51 Year
  Sex: Female
  Weight: 72.45 kg

DRUGS (3)
  1. AVEENO SKIN RELIEF MOISTURIZING FRAGRANCE FREE [Suspect]
     Active Substance: DIMETHICONE
     Indication: DRY SKIN
     Route: 061
     Dates: start: 20200414, end: 20200414
  2. AIRBORNE [Concomitant]
     Active Substance: HERBALS\MINERALS\VITAMINS
  3. BLISOVI 24 FE [Concomitant]
     Active Substance: ETHINYL ESTRADIOL\NORETHINDRONE ACETATE

REACTIONS (3)
  - Thermal burn [None]
  - Dry skin [None]
  - Rash [None]

NARRATIVE: CASE EVENT DATE: 20200414
